FAERS Safety Report 4343086-5 (Version None)
Quarter: 2004Q2

REPORT INFORMATION
  Report Type: 
  Country: None (occurrence: None)
  Receive Date: 20040419
  Receipt Date: 20040405
  Transmission Date: 20050107
  Serious: Yes (Hospitalization)
  Sender: FDA-Public Use
  Company Number: 23607

PATIENT
  Age: 79 Year
  Sex: Female

DRUGS (3)
  1. DISCOTRINE 10 MG (GLYCERYIL TRINITRATE) (GLYCERYL TRINITRATE) [Suspect]
     Indication: ANGINA PECTORIS
     Dosage: 10 MG (10 MG, 1 IN 1 DAY(S) TRANSDERMAL
     Route: 062
  2. MEDROL (METHYLPREDNISONE) [Suspect]
     Indication: BREAST CANCER
     Dosage: 100 MG (100 MG 1 IN 1 DAY (S) ORAL
     Route: 048
     Dates: start: 20030515, end: 20030518
  3. TAXOTERE [Suspect]
     Indication: BREAST CANCER
     Dosage: 100 MG INTRAVENOUS
     Route: 042
     Dates: start: 20030516, end: 20030516

REACTIONS (3)
  - AMNESIA [None]
  - CONFUSIONAL STATE [None]
  - DIABETES MELLITUS INSULIN-DEPENDENT [None]
